FAERS Safety Report 7504647-5 (Version None)
Quarter: 2011Q2

REPORT INFORMATION
  Report Type: 
  Country: None (occurrence: None)
  Receive Date: 20110525
  Receipt Date: 20110426
  Transmission Date: 20111010
  Serious: No
  Sender: FDA-Public Use
  Company Number: US-AMGEN-USASP2011021940

PATIENT
  Age: 72 Year
  Sex: Female

DRUGS (3)
  1. IMMUNE GLOBULIN NOS [Concomitant]
     Dosage: UNK
     Route: 042
     Dates: start: 20080414
  2. NPLATE [Suspect]
     Indication: IDIOPATHIC THROMBOCYTOPENIC PURPURA
     Dosage: UNK
     Dates: start: 20090601
  3. CORTICOSTEROIDS [Concomitant]

REACTIONS (2)
  - RASH ERYTHEMATOUS [None]
  - RASH PRURITIC [None]
